FAERS Safety Report 5675400-2 (Version None)
Quarter: 2008Q1

REPORT INFORMATION
  Report Type: 
  Country: None (occurrence: None)
  Receive Date: 20080320
  Receipt Date: 20080311
  Transmission Date: 20080703
  Serious: Yes (Death, Hospitalization, Other)
  Sender: FDA-Public Use
  Company Number: US-MERCK-0701USA00575

PATIENT
  Age: 55 Year
  Sex: Female
  Weight: 54 kg

DRUGS (7)
  1. FOSAMAX [Suspect]
     Indication: OSTEOPOROSIS
     Route: 048
     Dates: start: 20060101, end: 20070301
  2. FOSAMAX [Suspect]
     Route: 048
     Dates: start: 19970101
  3. CELEXA [Concomitant]
     Indication: DEPRESSION
     Route: 065
  4. DITROPAN [Concomitant]
     Route: 065
  5. RITALIN [Concomitant]
     Route: 065
  6. PRILOSEC [Concomitant]
     Route: 065
  7. ZOMETA [Suspect]
     Route: 065
     Dates: start: 20010101, end: 20050101

REACTIONS (48)
  - ANAEMIA [None]
  - ASCITES [None]
  - ASTHMA [None]
  - BILE DUCT OBSTRUCTION [None]
  - CATHETER RELATED COMPLICATION [None]
  - CHEST PAIN [None]
  - COUGH [None]
  - CYSTITIS HAEMORRHAGIC [None]
  - DEATH [None]
  - DEEP VEIN THROMBOSIS [None]
  - DRUG HYPERSENSITIVITY [None]
  - DRUG INEFFECTIVE [None]
  - DYSPNOEA [None]
  - DYSURIA [None]
  - FALL [None]
  - FIBULA FRACTURE [None]
  - HAEMATURIA [None]
  - HAND FRACTURE [None]
  - HEPATIC NEOPLASM MALIGNANT [None]
  - HIATUS HERNIA [None]
  - HUMERUS FRACTURE [None]
  - HYPOTENSION [None]
  - JOINT SPRAIN [None]
  - MALAISE [None]
  - MECHANICAL COMPLICATION OF IMPLANT [None]
  - METASTASES TO BONE [None]
  - METASTASES TO OVARY [None]
  - MUSCULOSKELETAL PAIN [None]
  - OBESITY [None]
  - OSTEOMYELITIS [None]
  - OSTEOMYELITIS ACUTE [None]
  - OSTEONECROSIS [None]
  - OVARIAN CANCER [None]
  - OVARIAN CANCER METASTATIC [None]
  - PARANASAL SINUS HYPERSECRETION [None]
  - PHLEBITIS SUPERFICIAL [None]
  - PLEURAL EFFUSION [None]
  - PNEUMONIA [None]
  - POLLAKIURIA [None]
  - PULMONARY EMBOLISM [None]
  - PUPILLARY DISORDER [None]
  - PYREXIA [None]
  - RASH [None]
  - SUPRAVENTRICULAR EXTRASYSTOLES [None]
  - SYRINGOMYELIA [None]
  - TACHYCARDIA [None]
  - TIBIA FRACTURE [None]
  - URETERIC OBSTRUCTION [None]
